FAERS Safety Report 5374322-4 (Version None)
Quarter: 2007Q2

REPORT INFORMATION
  Report Type: 
  Country: None (occurrence: None)
  Receive Date: 20070629
  Receipt Date: 20070622
  Transmission Date: 20071010
  Serious: Yes (Hospitalization)
  Sender: FDA-Public Use
  Company Number: PHEH2007US07089

PATIENT
  Age: 77 Year
  Sex: Female

DRUGS (10)
  1. ZELNORM [Suspect]
     Indication: CONSTIPATION
     Dosage: 6 MG, BID
     Route: 048
     Dates: start: 20061101, end: 20070301
  2. CAPTOPRIL [Concomitant]
  3. COREG [Concomitant]
  4. SOTALOL HYDROCHLORIDE [Concomitant]
  5. LIPITOR [Concomitant]
  6. LEVOTHYROXINE SODIUM [Concomitant]
  7. INSULIN [Concomitant]
  8. ISOSORBIDE DINITRATE [Concomitant]
  9. ASPIRIN [Concomitant]
  10. TIMOLOL MALEATE [Concomitant]

REACTIONS (5)
  - CARDIAC FAILURE CONGESTIVE [None]
  - CONDITION AGGRAVATED [None]
  - COUGH [None]
  - DYSPNOEA [None]
  - INCREASED UPPER AIRWAY SECRETION [None]
